FAERS Safety Report 13031550 (Version 1)
Quarter: 2016Q4

REPORT INFORMATION
  Report Type: Spontaneous
  Country: KR (occurrence: KR)
  Receive Date: 20161215
  Receipt Date: 20161215
  Transmission Date: 20170207
  Serious: Yes (Hospitalization, Other)
  Sender: FDA-Public Use
  Company Number: KR-BAYER-2016-231814

PATIENT
  Age: 60 Year
  Sex: Male

DRUGS (2)
  1. CLOPIDOGREL [Suspect]
     Active Substance: CLOPIDOGREL BISULFATE
     Indication: ACUTE MYOCARDIAL INFARCTION
     Dosage: UNK
     Route: 048
  2. ASPIRIN. [Suspect]
     Active Substance: ASPIRIN
     Indication: ACUTE MYOCARDIAL INFARCTION
     Dosage: UNK
     Route: 048

REACTIONS (9)
  - Gastritis erosive [None]
  - Benign small intestinal neoplasm [Recovered/Resolved]
  - Small intestinal haemorrhage [None]
  - Gastric ulcer [None]
  - Anaemia [Recovered/Resolved]
  - Haematochezia [None]
  - Gastrointestinal polyp haemorrhage [None]
  - Angiodysplasia [Recovered/Resolved]
  - Dyspnoea exertional [Recovered/Resolved]
